FAERS Safety Report 17510562 (Version 1)
Quarter: 2020Q1

REPORT INFORMATION
  Report Type: Spontaneous
  Country: US (occurrence: US)
  Receive Date: 20200306
  Receipt Date: 20200306
  Transmission Date: 20200409
  Serious: No
  Sender: FDA-Public Use
  Company Number: US-MIKART, LLC-2081345

PATIENT
  Age: 69 Year
  Sex: Male
  Weight: 122.73 kg

DRUGS (23)
  1. ATORVASTATIN [Concomitant]
     Active Substance: ATORVASTATIN
  2. BETAMETHASONE. [Concomitant]
     Active Substance: BETAMETHASONE
  3. COENZYME Q10 [Concomitant]
     Active Substance: UBIDECARENONE
  4. LISINOPRIL. [Concomitant]
     Active Substance: LISINOPRIL
  5. NITROSTAT [Concomitant]
     Active Substance: NITROGLYCERIN
  6. CARBIDOPA-LEVODOPA-B [Concomitant]
     Active Substance: CARBIDOPA\LEVODOPA
  7. CLOPIDOGREL [Concomitant]
     Active Substance: CLOPIDOGREL BISULFATE
  8. INVOKAMET [Concomitant]
     Active Substance: CANAGLIFLOZIN\METFORMIN HYDROCHLORIDE
  9. METAMUCIL THERAPY FOR REGULARITY [Concomitant]
     Active Substance: PSYLLIUM HUSK
  10. ASPIRIN. [Concomitant]
     Active Substance: ASPIRIN
     Route: 048
  11. GABAPENTIN. [Concomitant]
     Active Substance: GABAPENTIN
  12. HYDROCHLOROTHIAZIDE. [Concomitant]
     Active Substance: HYDROCHLOROTHIAZIDE
  13. METOPROLOL. [Concomitant]
     Active Substance: METOPROLOL
  14. OZEMPIC [Concomitant]
     Active Substance: SEMAGLUTIDE
  15. HYDROCODONE BITARTRATE AND ACETAMINOPHEN [Suspect]
     Active Substance: ACETAMINOPHEN\HYDROCODONE BITARTRATE
     Route: 048
  16. TOUJEO [Concomitant]
     Active Substance: INSULIN GLARGINE
  17. METANX [Concomitant]
     Active Substance: LEVOMEFOLATE CALCIUM\METHYLCOBALAMIN\PYRIDOXAL PHOSPHATE ANHYDROUS
  18. ONDANSETRON [Concomitant]
     Active Substance: ONDANSETRON
  19. RESVERATROL [Concomitant]
     Active Substance: DIETARY SUPPLEMENT\RESVERATROL
  20. MAGNESIUM CITRATE. [Concomitant]
     Active Substance: MAGNESIUM CITRATE
  21. KORLYM [Concomitant]
     Active Substance: MIFEPRISTONE
     Route: 048
  22. VASCEPA [Concomitant]
     Active Substance: ICOSAPENT ETHYL
  23. BACLOFEN. [Concomitant]
     Active Substance: BACLOFEN

REACTIONS (2)
  - Somnolence [Unknown]
  - Feeling abnormal [Unknown]
